FAERS Safety Report 5946654-X (Version None)
Quarter: 2008Q4

REPORT INFORMATION
  Report Type: 
  Country: None (occurrence: None)
  Receive Date: 20081110
  Receipt Date: 20081027
  Transmission Date: 20090506
  Serious: Yes (Other)
  Sender: FDA-Public Use
  Company Number: US-ROCHE-593623

PATIENT
  Age: 50 Year
  Sex: Female

DRUGS (11)
  1. RIBAVIRIN [Suspect]
     Indication: HEPATITIS C
     Route: 065
  2. NELFINAVIR [Suspect]
     Route: 065
  3. PEGYLATED INTERFERON NOS [Suspect]
     Indication: HEPATITIS C
     Route: 065
  4. STAVUDINE [Suspect]
     Route: 065
  5. STAVUDINE [Suspect]
     Route: 065
  6. DIDANOSINE [Suspect]
     Route: 065
  7. DIDANOSINE [Suspect]
     Route: 065
  8. LAMIVUDINE [Suspect]
     Route: 065
  9. ATAZANAVIR SULFATE [Suspect]
     Route: 065
  10. INDINIVIR SULFATE [Suspect]
     Route: 065
  11. UNSPECIFIED DRUGS [Concomitant]

REACTIONS (4)
  - BUNDLE BRANCH BLOCK LEFT [None]
  - EYELID PTOSIS [None]
  - LIPODYSTROPHY ACQUIRED [None]
  - SUPRAVENTRICULAR TACHYCARDIA [None]
